FAERS Safety Report 8545722-6 (Version None)
Quarter: 2012Q3

REPORT INFORMATION
  Report Type: 
  Country: None (occurrence: None)
  Receive Date: 20120727
  Receipt Date: 20120725
  Transmission Date: 20120928
  Serious: Yes (Other)
  Sender: FDA-Public Use
  Company Number: US-ROCHE-1061684

PATIENT
  Sex: Female
  Weight: 54.48 kg

DRUGS (1)
  1. ACCUTANE [Suspect]
     Indication: HIDRADENITIS
     Route: 048
     Dates: start: 19981125, end: 19990324

REACTIONS (5)
  - CYST [None]
  - SUICIDAL IDEATION [None]
  - COLITIS MICROSCOPIC [None]
  - DEPRESSION [None]
  - INFLAMMATORY BOWEL DISEASE [None]
